FAERS Safety Report 5112797-6 (Version None)
Quarter: 2006Q3

REPORT INFORMATION
  Report Type: 
  Country: None (occurrence: None)
  Receive Date: 20060922
  Receipt Date: 20060914
  Transmission Date: 20061208
  Serious: Yes (Death, Other)
  Sender: FDA-Public Use
  Company Number: 2006CG01506

PATIENT
  Age: 31181 Day
  Sex: Female

DRUGS (9)
  1. ARIMIDEX [Suspect]
     Indication: BREAST CANCER
     Route: 048
     Dates: start: 20060913, end: 20060913
  2. FLODIL [Concomitant]
     Indication: HYPERTENSION
  3. TEMERIT [Concomitant]
     Indication: HYPERTENSION
  4. ALTEIS [Concomitant]
     Indication: HYPERTENSION
  5. LEVOTHYROXINE SODIUM [Concomitant]
     Indication: HYPOTHYROIDISM
  6. FENOFIBRATE [Concomitant]
  7. DAFLON [Concomitant]
  8. MOVICOL [Concomitant]
     Indication: CONSTIPATION
  9. DAFALGAN [Concomitant]
     Indication: OSTEOARTHRITIS

REACTIONS (5)
  - COMA [None]
  - CONVULSION [None]
  - GENERAL PHYSICAL HEALTH DETERIORATION [None]
  - HEADACHE [None]
  - NAUSEA [None]
